FAERS Safety Report 7218816-5 (Version None)
Quarter: 2011Q1

REPORT INFORMATION
  Report Type: 
  Country: None (occurrence: None)
  Receive Date: 20110110
  Receipt Date: 20100616
  Transmission Date: 20110831
  Serious: No
  Sender: FDA-Public Use
  Company Number: US-ABBOTT-10P-163-0652835-00

PATIENT
  Sex: Male

DRUGS (1)
  1. VICODIN [Suspect]
     Indication: SPINAL COLUMN STENOSIS
     Dosage: 7.5/500
     Route: 048
     Dates: start: 19800101

REACTIONS (1)
  - CONSTIPATION [None]
